FAERS Safety Report 4517693-0 (Version None)
Quarter: 2004Q4

REPORT INFORMATION
  Report Type: 
  Country: None (occurrence: None)
  Receive Date: 20041203
  Receipt Date: 20041123
  Transmission Date: 20050328
  Serious: Yes (Other)
  Sender: FDA-Public Use
  Company Number: 200419082US

PATIENT
  Sex: Male

DRUGS (1)
  1. TAXOTERE [Suspect]
     Dosage: DOSE: UNK

REACTIONS (3)
  - LACRIMATION INCREASED [None]
  - PANCREATITIS [None]
  - SKIN REACTION [None]
